FAERS Safety Report 5028669-1 (Version None)
Quarter: 2006Q2

REPORT INFORMATION
  Report Type: 
  Country: None (occurrence: None)
  Receive Date: 20060619
  Receipt Date: 20060608
  Transmission Date: 20061013
  Serious: Yes (Hospitalization)
  Sender: FDA-Public Use
  Company Number: PHBS2006US08567

PATIENT
  Age: 23 Year
  Sex: Female

DRUGS (8)
  1. GABAPENTIN [Concomitant]
     Route: 065
  2. ESCITALOPRAM OXALATE [Suspect]
     Route: 065
  3. LAMOTRIGINE [Concomitant]
     Dosage: 125 MG, BID
     Route: 065
  4. LAMOTRIGINE [Concomitant]
     Dosage: 50 MG, BID
     Route: 065
  5. TRAZODONE HCL [Concomitant]
     Dosage: 100 MG, QHS
     Route: 065
  6. VENLAFAXINE HCL [Suspect]
     Dosage: 225 MG/D
     Route: 065
  7. MIRTAZAPINE [Concomitant]
     Dosage: FOR 3 DAYS
     Route: 065
  8. METHYLPHENIDATE HCL [Suspect]
     Dosage: 10 MG 2 DOSES 3 HOURS APART
     Route: 065

REACTIONS (20)
  - ASTHENIA [None]
  - BLOOD PRESSURE INCREASED [None]
  - CHEST PAIN [None]
  - CONFUSIONAL STATE [None]
  - DIZZINESS [None]
  - DRUG INTOLERANCE [None]
  - FALL [None]
  - FLUSHING [None]
  - HALLUCINATION [None]
  - HEADACHE [None]
  - HEART RATE INCREASED [None]
  - HYPERVENTILATION [None]
  - LETHARGY [None]
  - MUSCLE RIGIDITY [None]
  - OVERDOSE [None]
  - PALLOR [None]
  - PHARYNGEAL ERYTHEMA [None]
  - PYREXIA [None]
  - SEROTONIN SYNDROME [None]
  - TREMOR [None]
